FAERS Safety Report 24061237 (Version 11)
Quarter: 2025Q4

REPORT INFORMATION
  Report Type: Spontaneous
  Country: AU (occurrence: AU)
  Receive Date: 20240708
  Receipt Date: 20251215
  Transmission Date: 20260118
  Serious: Yes (Life-Threatening, Hospitalization, Other)
  Sender: MYLAN
  Company Number: AU-MYLANLABS-2024M1062541

PATIENT
  Age: 40 Year
  Sex: Male

DRUGS (19)
  1. CLOZARIL [Suspect]
     Active Substance: CLOZAPINE
     Indication: Schizophrenia
     Dosage: UNK
     Route: 061
     Dates: start: 20240531, end: 20240622
  2. CLOZARIL [Suspect]
     Active Substance: CLOZAPINE
     Dosage: UNK
     Route: 061
  3. CLOZARIL [Suspect]
     Active Substance: CLOZAPINE
     Dosage: 250 MILLIGRAM
     Route: 061
     Dates: start: 20250204, end: 20250508
  4. CLOZARIL [Suspect]
     Active Substance: CLOZAPINE
     Dosage: 350 MILLIGRAM
     Route: 061
     Dates: start: 20250204, end: 20250508
  5. CLOZARIL [Suspect]
     Active Substance: CLOZAPINE
     Dosage: 500 MILLIGRAM
     Route: 061
  6. FLUPENTIXOL DECANOATE [Concomitant]
     Active Substance: FLUPENTIXOL DECANOATE
     Dosage: 200 MILLIGRAM (Q2/52)
  7. FLUPENTIXOL DECANOATE [Concomitant]
     Active Substance: FLUPENTIXOL DECANOATE
     Dosage: 300 MILLIGRAM, QW
  8. BENZTROPINE [Concomitant]
     Active Substance: BENZTROPINE
     Dosage: 2 MILLIGRAM, AM (MORNING)
  9. CHLORPROMAZINE [Concomitant]
     Active Substance: CHLORPROMAZINE
     Dosage: 600 MILLIGRAM, PM (NIGHT)
     Route: 061
  10. CHLORPROMAZINE [Concomitant]
     Active Substance: CHLORPROMAZINE
     Dosage: 300 MILLIGRAM, TID (TDS)
     Route: 061
  11. MIANSERIN [Concomitant]
     Active Substance: MIANSERIN
     Dosage: 50 MILLIGRAM, PM (NIGHT)
  12. OLANZAPINE [Concomitant]
     Active Substance: OLANZAPINE
     Dosage: 30 MILLIGRAM, PM (NIGHT)
     Route: 061
  13. OLANZAPINE [Concomitant]
     Active Substance: OLANZAPINE
     Dosage: 10 MILLIGRAM, AM (MORNING)
     Route: 061
  14. OLANZAPINE [Concomitant]
     Active Substance: OLANZAPINE
     Dosage: 20 MILLIGRAM, PM (NIGHT)
     Route: 061
  15. HALOPERIDOL [Concomitant]
     Active Substance: HALOPERIDOL
     Dosage: UNK, PRN
  16. LORAZEPAM [Concomitant]
     Active Substance: LORAZEPAM
     Dosage: UNK, PRN
  17. PROMETHAZINE [Concomitant]
     Active Substance: PROMETHAZINE HYDROCHLORIDE
     Dosage: UNK, PRN
  18. FLUPENTIXOL [Concomitant]
     Active Substance: FLUPENTIXOL
     Dosage: 300 MILLIGRAM, QW
  19. PAROXETINE [Concomitant]
     Active Substance: PAROXETINE
     Dosage: 40 MILLIGRAM, PM  (NIGHT)

REACTIONS (18)
  - Loss of consciousness [Unknown]
  - Syncope [Unknown]
  - Polydipsia [Unknown]
  - Hyponatraemia [Unknown]
  - Depressed level of consciousness [Unknown]
  - Seizure [Unknown]
  - Meningococcal bacteraemia [Unknown]
  - Mental impairment [Unknown]
  - Splenomegaly [Unknown]
  - Malaise [Unknown]
  - Head injury [Unknown]
  - Tongue injury [Unknown]
  - Influenza [Unknown]
  - White blood cell count decreased [Recovered/Resolved]
  - Neutrophil count decreased [Recovered/Resolved]
  - Lymphocyte count decreased [Unknown]
  - Leukocytosis [Recovered/Resolved]
  - Neutrophilia [Recovered/Resolved]

NARRATIVE: CASE EVENT DATE: 20240701
